FAERS Safety Report 6043752-X (Version None)
Quarter: 2009Q1

REPORT INFORMATION
  Report Type: 
  Country: None (occurrence: None)
  Receive Date: 20090120
  Receipt Date: 20090113
  Transmission Date: 20090719
  Serious: Yes (Disabling)
  Sender: FDA-Public Use
  Company Number: PHHY2008GB27273

PATIENT
  Sex: Male

DRUGS (3)
  1. STALEVO 100 [Suspect]
     Indication: PARKINSON'S DISEASE
     Dosage: 150 X 6, UNK
     Route: 048
     Dates: start: 20050301, end: 20080601
  2. PRAMIPEXOLE DIHYDROCHLORIDE [Concomitant]
     Dosage: 3MG, UNK
     Route: 048
     Dates: start: 20050601
  3. AMANTADINE HCL [Concomitant]
     Dosage: 100, UNK
     Route: 048
     Dates: start: 20060701

REACTIONS (1)
  - TOOTH LOSS [None]
